FAERS Safety Report 12990838 (Version 1)
Quarter: 2016Q4

REPORT INFORMATION
  Report Type: Spontaneous
  Country: US (occurrence: US)
  Receive Date: 20161130
  Receipt Date: 20161130
  Transmission Date: 20170207
  Serious: Yes (Other)
  Sender: FDA-Public Use
  Company Number: None

PATIENT
  Age: 69 Year
  Sex: Male
  Weight: 85.5 kg

DRUGS (9)
  1. FLUTICASONE [Concomitant]
     Active Substance: FLUTICASONE\FLUTICASONE PROPIONATE
  2. CETIRIZINE [Concomitant]
     Active Substance: CETIRIZINE HYDROCHLORIDE
  3. CPAP [Concomitant]
     Active Substance: DEVICE
  4. TAMULOSIN [Concomitant]
     Active Substance: TAMSULOSIN
  5. VENLAFAXINE [Concomitant]
     Active Substance: VENLAFAXINE HYDROCHLORIDE
  6. NAXOPREN [Concomitant]
     Active Substance: NAPROXEN
  7. SIMVASTATIN. [Concomitant]
     Active Substance: SIMVASTATIN
  8. MULTIVITAMIN [Concomitant]
     Active Substance: VITAMINS
  9. PANTROPRAZOLE SODIUM CADISTA [Suspect]
     Active Substance: PANTOPRAZOLE SODIUM
     Indication: GASTROOESOPHAGEAL REFLUX DISEASE
     Dosage: ?          QUANTITY:1 TABLET(S);?
     Route: 048
     Dates: start: 20130815, end: 20161101

REACTIONS (3)
  - Chronic lymphocytic leukaemia stage 0 [None]
  - Arthropod bite [None]
  - Dermatitis [None]

NARRATIVE: CASE EVENT DATE: 20160701
